FAERS Safety Report 21772840 (Version 1)
Quarter: 2022Q4

REPORT INFORMATION
  Report Type: Spontaneous
  Country: US (occurrence: US)
  Receive Date: 20221223
  Receipt Date: 20221223
  Transmission Date: 20230112
  Serious: No
  Sender: FDA-Public Use
  Company Number: US-VERTEX PHARMACEUTICALS-2022-011959

PATIENT
  Sex: Female

DRUGS (14)
  1. TRIKAFTA [Suspect]
     Active Substance: ELEXACAFTOR\IVACAFTOR\TEZACAFTOR
     Indication: Cystic fibrosis
     Dosage: (2 ORANGE TABS) AM AND (1 BLUE TAB) PM
     Route: 048
     Dates: start: 20220805
  2. OXYMETAZOLINE HYDROCHLORIDE [Suspect]
     Active Substance: OXYMETAZOLINE HYDROCHLORIDE
     Indication: Product used for unknown indication
     Route: 065
  3. COVID-19 VACCINE NOS [Suspect]
     Active Substance: COVID-19 VACCINE NOS
     Indication: Immunisation
     Dosage: UNKNOWN
     Route: 065
  4. ROSUVASTATIN CALCIUM [Concomitant]
     Active Substance: ROSUVASTATIN CALCIUM
  5. IPRATROPIUM BROMIDE [Concomitant]
     Active Substance: IPRATROPIUM BROMIDE
  6. AZELASTINE HYDROCHLORIDE [Concomitant]
     Active Substance: AZELASTINE HYDROCHLORIDE
  7. ANORO ELLIPTA [Concomitant]
     Active Substance: UMECLIDINIUM BROMIDE\VILANTEROL TRIFENATATE
  8. ACYCLOVIR [Concomitant]
     Active Substance: ACYCLOVIR
  9. GLUCOSAMINE SULFATE [Concomitant]
     Active Substance: GLUCOSAMINE SULFATE
  10. VITAMIN B12 [Concomitant]
     Active Substance: CYANOCOBALAMIN
  11. ACETAMINOPHEN [Concomitant]
     Active Substance: ACETAMINOPHEN
  12. CALCIUM CARBONATE [Concomitant]
     Active Substance: CALCIUM CARBONATE
  13. CLARITIN [Concomitant]
     Active Substance: LORATADINE
  14. BUDESONIDE [Concomitant]
     Active Substance: BUDESONIDE

REACTIONS (23)
  - Diarrhoea [Recovering/Resolving]
  - Headache [Recovering/Resolving]
  - Lung disorder [Not Recovered/Not Resolved]
  - Hypersensitivity [Unknown]
  - Periorbital swelling [Recovering/Resolving]
  - Foreign body sensation in eyes [Recovering/Resolving]
  - Eye abrasion [Recovering/Resolving]
  - Lacrimation increased [Recovering/Resolving]
  - Lacrimation disorder [Recovering/Resolving]
  - Feeling drunk [Unknown]
  - Adverse event following immunisation [Recovering/Resolving]
  - Pain [Recovering/Resolving]
  - Sinus disorder [Recovering/Resolving]
  - Oxygen saturation abnormal [Recovering/Resolving]
  - Respiratory tract congestion [Recovering/Resolving]
  - Asthenia [Recovering/Resolving]
  - Insomnia [Recovering/Resolving]
  - Malaise [Recovering/Resolving]
  - Weight increased [Unknown]
  - Feeling abnormal [Recovering/Resolving]
  - Fatigue [Unknown]
  - Wheezing [Recovering/Resolving]
  - Dizziness [Recovering/Resolving]

NARRATIVE: CASE EVENT DATE: 20220101
